FAERS Safety Report 7104958-1 (Version None)
Quarter: 2010Q4

REPORT INFORMATION
  Report Type: 
  Country: None (occurrence: None)
  Receive Date: 20101116
  Receipt Date: 20101103
  Transmission Date: 20110411
  Serious: Yes (Other)
  Sender: FDA-Public Use
  Company Number: PHHY2010US75073

PATIENT
  Sex: Female

DRUGS (1)
  1. FEMARA [Suspect]
     Dosage: 2.5 MG, UNK
     Route: 048

REACTIONS (6)
  - CARDIAC DISORDER [None]
  - CATARACT OPERATION [None]
  - HYPOAESTHESIA [None]
  - MALAISE [None]
  - SLEEP DISORDER [None]
  - TREATMENT NONCOMPLIANCE [None]
